FAERS Safety Report 11446370 (Version 1)
Quarter: 2015Q3

REPORT INFORMATION
  Report Type: Spontaneous
  Country: JP (occurrence: JP)
  Receive Date: 20150902
  Receipt Date: 20150902
  Transmission Date: 20151125
  Serious: Yes (Other)
  Sender: FDA-Public Use
  Company Number: JP-MYLANLABS-2015M1029514

PATIENT

DRUGS (2)
  1. DOXORUBICIN [Suspect]
     Active Substance: DOXORUBICIN
     Indication: FIBROSARCOMA
     Route: 065
  2. PAZOPANIB [Suspect]
     Active Substance: PAZOPANIB
     Indication: FIBROSARCOMA
     Dosage: 800 MG/DAY
     Route: 065

REACTIONS (6)
  - Fatigue [Unknown]
  - Hypertension [Recovered/Resolved]
  - Fistula [Unknown]
  - Neutropenia [Unknown]
  - Decreased appetite [Unknown]
  - Hair colour changes [Unknown]
